FAERS Safety Report 19402922 (Version 2)
Quarter: 2021Q2

REPORT INFORMATION
  Report Type: Report from Study
  Country: GB (occurrence: GB)
  Receive Date: 20210610
  Receipt Date: 20210610
  Transmission Date: 20210717
  Serious: Yes (Hospitalization)
  Sender: FDA-Public Use
  Company Number: GB-ROCHE-2466093

PATIENT
  Age: 68 Year
  Sex: Male
  Weight: 54.2 kg

DRUGS (7)
  1. OMEPRAZOLE. [Concomitant]
     Active Substance: OMEPRAZOLE
     Indication: BARRETT^S OESOPHAGUS
     Route: 048
     Dates: start: 20170203
  2. ATEZOLIZUMAB. [Suspect]
     Active Substance: ATEZOLIZUMAB
     Indication: SQUAMOUS CELL CARCINOMA
     Dosage: ON 17/OCT/2019, HE RECEIVED LAST DOSE OF ATEZOLIZUMAB PRIOR TO AE AT 13:50.
     Route: 042
     Dates: start: 20191017
  3. THIAMINE. [Concomitant]
     Active Substance: THIAMINE
     Indication: BARRETT^S OESOPHAGUS
     Route: 048
     Dates: start: 20170203
  4. DALTEPARIN [Concomitant]
     Active Substance: DALTEPARIN
     Dosage: DOSE: 5000
     Route: 058
     Dates: start: 20191104, end: 20191104
  5. SENNA [Concomitant]
     Active Substance: SENNA LEAF\SENNOSIDES\SENNOSIDES A AND B
     Indication: CONSTIPATION
     Route: 048
  6. PARACETAMOL [Concomitant]
     Active Substance: ACETAMINOPHEN
     Indication: ORAL PAIN
     Route: 048
     Dates: start: 20190723
  7. LAXIDO [Concomitant]
     Active Substance: POLYETHYLENE GLYCOL 3350\POTASSIUM CHLORIDE\SODIUM BICARBONATE\SODIUM CHLORIDE
     Indication: CONSTIPATION
     Dosage: DOSE: 1 PRN (AS NEEDED)
     Route: 048
     Dates: start: 20190723

REACTIONS (1)
  - Epiglottitis [Recovered/Resolved]

NARRATIVE: CASE EVENT DATE: 20191102
